FAERS Safety Report 14955542 (Version 1)
Quarter: 2018Q2

REPORT INFORMATION
  Report Type: Spontaneous
  Country: US (occurrence: US)
  Receive Date: 20180531
  Receipt Date: 20180531
  Transmission Date: 20180711
  Serious: Yes (Hospitalization, Other)
  Sender: FDA-Public Use
  Company Number: US-AMGEN-USASP2018071583

PATIENT
  Age: 59 Year
  Sex: Female

DRUGS (3)
  1. ENBREL [Suspect]
     Active Substance: ETANERCEPT
     Indication: RHEUMATOID ARTHRITIS
     Dosage: 50 MG, UNK
     Route: 065
     Dates: start: 20180406, end: 20180420
  2. ALBUTEROL. [Suspect]
     Active Substance: ALBUTEROL
     Indication: PRODUCT USED FOR UNKNOWN INDICATION
     Dosage: UNK
     Route: 065
     Dates: end: 2018
  3. NAPROXEN. [Suspect]
     Active Substance: NAPROXEN
     Indication: PRODUCT USED FOR UNKNOWN INDICATION
     Dosage: UNK
     Route: 065
     Dates: end: 2018

REACTIONS (16)
  - Pain [Unknown]
  - Injection site pruritus [Unknown]
  - Grip strength decreased [Unknown]
  - Lip blister [Unknown]
  - Subdural haematoma [Unknown]
  - Haemorrhage [Unknown]
  - Immunosuppression [Unknown]
  - Injection site mass [Unknown]
  - Memory impairment [Unknown]
  - Feeling abnormal [Unknown]
  - Postoperative wound infection [Unknown]
  - Abdominal discomfort [Unknown]
  - Injection site discolouration [Unknown]
  - Neuropathy peripheral [Unknown]
  - Injection site swelling [Unknown]
  - Injection site macule [Unknown]

NARRATIVE: CASE EVENT DATE: 2018
